FAERS Safety Report 7030209-2 (Version None)
Quarter: 2010Q4

REPORT INFORMATION
  Report Type: 
  Country: None (occurrence: None)
  Receive Date: 20101006
  Receipt Date: 20100927
  Transmission Date: 20110411
  Serious: Yes (Other)
  Sender: FDA-Public Use
  Company Number: CA-US-EMD SERONO, INC.-230192J10CAN

PATIENT
  Sex: Female

DRUGS (5)
  1. REBIF [Suspect]
     Indication: DEMYELINATION
     Dates: start: 20100222
  2. REBIF [Suspect]
     Indication: MULTIPLE SCLEROSIS
  3. REBIF [Suspect]
  4. ACETAMINOPHEN [Concomitant]
  5. ORTHO-NOVUM 7/7/7-21 [Concomitant]

REACTIONS (7)
  - CHILLS [None]
  - INFLUENZA LIKE ILLNESS [None]
  - INJECTION SITE ERYTHEMA [None]
  - INJECTION SITE HAEMATOMA [None]
  - MYALGIA [None]
  - SMEAR CERVIX ABNORMAL [None]
  - VAGINAL HAEMORRHAGE [None]
